FAERS Safety Report 10255929 (Version 1)
Quarter: 2014Q2

REPORT INFORMATION
  Report Type: Spontaneous
  Country: US (occurrence: None)
  Receive Date: 20140530
  Receipt Date: 20140530
  Transmission Date: 20141212
  Serious: Yes (Other)
  Sender: FDA-Public Use
  Company Number: 2013037079

PATIENT
  Sex: Male
  Weight: 91.63 kg

DRUGS (28)
  1. HIZENTRA [Suspect]
     Indication: IMMUNODEFICIENCY COMMON VARIABLE
     Route: 058
  2. PROCHLORPERAZINE (PROCHLORPERAZINE) [Concomitant]
  3. AUGMENTIN [Concomitant]
  4. PEPCID (FAMOTIDINE) [Concomitant]
  5. BIAXIN (CLARITHROMYCIN) [Concomitant]
  6. SYNTHROID (LEVOTHYROXINE SODIUM) [Concomitant]
  7. ACETAMINOPHEN (PARACETAMOL) [Concomitant]
  8. DIPHENHYDRAMINE (DIPHENHYDRAMINE) [Concomitant]
  9. EPI-PEN (EPINEPHRINE) [Concomitant]
  10. L-M-X (LIDOCAINE) [Concomitant]
  11. AMOXICILLIN (AMOXICILLIN) [Concomitant]
  12. CODEINE (CODEINE) [Concomitant]
  13. DEPO-TESTOSTERONE (TESTOSTERONE CIPIONATE) [Concomitant]
  14. AZULFIDINE (SULFASALAZINE) [Concomitant]
  15. AMBIEN (ZOLPIDEM TARTRATE) [Concomitant]
  16. NITROSTAT (GLYCERYL TRINITRATE) [Concomitant]
  17. PROVENTIL (SALBUTAMOL) [Concomitant]
  18. FENTANYL (FENTANYL) [Concomitant]
  19. FOLIC ACID (FOLIC ACID) [Concomitant]
  20. MOMETASONE FUROATE (MOMETASONE FUROATE) [Concomitant]
  21. VENTOLIN (SALBUTAMOL) [Concomitant]
  22. ADVAIR DISKUS [Concomitant]
  23. PROMETHAZINE (PROMETHAZINE) [Concomitant]
  24. LIDODERM (LIDOCAINE) [Concomitant]
  25. MS CONTIN (MORPHINE SULFATE) [Concomitant]
  26. PANCREAZE (PANCRELIPASE) [Concomitant]
  27. AZELASTINE (AZELASTINE) (AZELASTINE) [Concomitant]
  28. MYCOSTATIN (NYSTATIN) [Concomitant]

REACTIONS (5)
  - Oropharyngeal swelling [None]
  - Eye swelling [None]
  - Lip swelling [None]
  - Nausea [None]
  - Headache [None]
